FAERS Safety Report 17072571 (Version 1)
Quarter: 2019Q4

REPORT INFORMATION
  Report Type: Spontaneous
  Country: US (occurrence: US)
  Receive Date: 20191125
  Receipt Date: 20191125
  Transmission Date: 20200122
  Serious: Yes (Life-Threatening, Disabling)
  Sender: FDA-Public Use
  Company Number: US-TEVA-2019-US-1142042

PATIENT
  Sex: Male

DRUGS (2)
  1. AMIODARONE HYDROCHLORIDE TEVA [Suspect]
     Active Substance: AMIODARONE HYDROCHLORIDE
     Indication: ATRIAL FIBRILLATION
     Route: 048
  2. AMIODARONE HYDROCHLORIDE. [Suspect]
     Active Substance: AMIODARONE HYDROCHLORIDE
     Indication: ATRIAL FIBRILLATION
     Route: 048

REACTIONS (17)
  - Halo vision [Unknown]
  - Vitreous floaters [Unknown]
  - Dyspnoea exertional [Unknown]
  - Dyspnoea [Unknown]
  - Heart rate irregular [Unknown]
  - Off label use [Unknown]
  - Dizziness [Unknown]
  - Abdominal pain [Unknown]
  - Renal disorder [Unknown]
  - Asthenia [Unknown]
  - Cardiac failure congestive [Unknown]
  - Visual impairment [Unknown]
  - Traumatic lung injury [Unknown]
  - Fatigue [Unknown]
  - Blindness [Unknown]
  - Coordination abnormal [Unknown]
  - Cough [Unknown]

NARRATIVE: CASE EVENT DATE: 201509
